FAERS Safety Report 5241329-7 (Version None)
Quarter: 2007Q1

REPORT INFORMATION
  Report Type: 
  Country: None (occurrence: None)
  Receive Date: 20070212
  Receipt Date: 20070201
  Transmission Date: 20070707
  Serious: Yes (Other)
  Sender: FDA-Public Use
  Company Number: 13666797

PATIENT
  Age: 50 Year
  Sex: Female

DRUGS (1)
  1. EMSAM [Suspect]
     Indication: MAJOR DEPRESSION
     Dosage: 6 MILLIGRAM, 1 DAY TD

REACTIONS (1)
  - ANGIOEDEMA [None]
